FAERS Safety Report 11129288 (Version 1)
Quarter: 2015Q2

REPORT INFORMATION
  Report Type: Spontaneous
  Country: US (occurrence: US)
  Receive Date: 20150521
  Receipt Date: 20150521
  Transmission Date: 20150821
  Serious: Yes (Other)
  Sender: FDA-Public Use
  Company Number: US-PFIZER INC-2015169440

PATIENT
  Sex: Male

DRUGS (3)
  1. XANAX [Suspect]
     Active Substance: ALPRAZOLAM
     Dosage: 2 MG, 3X/DAY
  2. XANAX [Suspect]
     Active Substance: ALPRAZOLAM
     Indication: ANXIETY
     Dosage: 6-8 MG A DAY
  3. XANAX [Suspect]
     Active Substance: ALPRAZOLAM
     Dosage: 8 MG, 1X/DAY

REACTIONS (3)
  - Drug dependence [Unknown]
  - Drug hypersensitivity [Unknown]
  - Drug withdrawal syndrome [Unknown]
